FAERS Safety Report 14186688 (Version 1)
Quarter: 2017Q4

REPORT INFORMATION
  Report Type: Spontaneous
  Country: US (occurrence: None)
  Receive Date: 20171112
  Receipt Date: 20171112
  Transmission Date: 20180321
  Serious: No
  Sender: FDA-Public Use
  Company Number: None

PATIENT
  Age: 44 Year
  Sex: Female

DRUGS (1)
  1. CAPECITABINE 500MG ACCORD [Suspect]
     Active Substance: CAPECITABINE
     Indication: BREAST CANCER FEMALE
     Dosage: 5X500MG=2000MG BID FOR 14DAYS AND THEN 7 DAYS OFF PO
     Route: 048
     Dates: start: 20170727

REACTIONS (2)
  - Paraesthesia [None]
  - Skin exfoliation [None]

NARRATIVE: CASE EVENT DATE: 20170910
